FAERS Safety Report 8169213-X (Version None)
Quarter: 2012Q1

REPORT INFORMATION
  Report Type: 
  Country: None (occurrence: None)
  Receive Date: 20120227
  Receipt Date: 20120216
  Transmission Date: 20120608
  Serious: Yes (Life-Threatening, Hospitalization, Other)
  Sender: FDA-Public Use
  Company Number: JP-BRISTOL-MYERS SQUIBB COMPANY-16376279

PATIENT
  Age: 82 Year
  Sex: Female

DRUGS (26)
  1. BIFONAZOLE [Concomitant]
  2. PAXIL [Concomitant]
  3. SIGMART [Concomitant]
  4. KETOPROFEN [Concomitant]
     Dosage: MOHRUS TAPE L
  5. UBRETID [Concomitant]
  6. WARFARIN SODIUM [Concomitant]
  7. GASMOTIN [Concomitant]
  8. DIFLUCORTOLONE VALERATE [Concomitant]
  9. FUROSEMIDE [Concomitant]
  10. NOVORAPID [Concomitant]
  11. FORSENID [Concomitant]
  12. ZYRTEC [Concomitant]
  13. LANIRAPID [Suspect]
     Route: 048
  14. PRAVASTATIN SODIUM [Concomitant]
  15. AMARYL [Concomitant]
  16. MAGNESIUM SULFATE [Concomitant]
  17. POLYCARBOPHIL CALCIUM [Concomitant]
  18. MUCODYNE [Concomitant]
  19. LANSOPRAZOLE [Concomitant]
  20. METFORMIN HCL [Suspect]
     Indication: DIABETES MELLITUS
     Route: 048
     Dates: start: 20110518
  21. JUVELA [Concomitant]
  22. LANTUS [Concomitant]
  23. OLMESARTAN MEDOXOMIL [Concomitant]
  24. AMITRIPTYLINE HCL [Concomitant]
  25. NIFLAN [Concomitant]
  26. SPIRONOLACTONE [Concomitant]

REACTIONS (5)
  - LACTIC ACIDOSIS [None]
  - CARDIAC ARREST [None]
  - RENAL IMPAIRMENT [None]
  - VENTRICULAR FLUTTER [None]
  - VENTRICULAR TACHYCARDIA [None]
